FAERS Safety Report 7851381 (Version 2)
Quarter: 2012Q4

REPORT INFORMATION
  Report Type: Spontaneous
  Country: US (occurrence: US)
  Receive Date: 20110310
  Receipt Date: 20121005
  Transmission Date: 20130627
  Serious: Yes (Death, Hospitalization)
  Sender: FDA-Public Use
  Company Number: A0917027A

PATIENT
  Age: 77 Year
  Sex: Male

DRUGS (1)
  1. VOTRIENT TABLET (PAZOPANIB) [Suspect]
     Indication: METASTATIC RENAL CELL CARCINOMA
     Dosage: 800MG Per day
     Route: 048
     Dates: start: 20100921

REACTIONS (12)
  - Hepatotoxicity [Unknown]
  - Liver function test abnormal [Unknown]
  - Jaundice [Unknown]
  - Hepatic failure [Unknown]
  - Atrial fibrillation [Unknown]
  - Hypothyroidism [Unknown]
  - Renal failure [Unknown]
  - Disease progression [Fatal]
  - Aspartate aminotransferase increased [None]
  - Alanine aminotransferase increased [None]
  - Blood alkaline phosphatase increased [None]
  - Blood bilirubin increased [None]
